FAERS Safety Report 8259077-8 (Version None)
Quarter: 2012Q2

REPORT INFORMATION
  Report Type: 
  Country: None (occurrence: None)
  Receive Date: 20120404
  Receipt Date: 20120402
  Transmission Date: 20120825
  Serious: Yes (Death, Other)
  Sender: FDA-Public Use
  Company Number: US-PFIZER INC-2012083114

PATIENT
  Age: 28 Year
  Sex: Male

DRUGS (4)
  1. BUSPIRONE [Interacting]
     Dosage: UNK
  2. MEPERIDINE HCL [Concomitant]
     Indication: CHILLS
     Dosage: ONE DOSE
  3. LINEZOLID [Suspect]
     Dosage: UNK
  4. VANCOMYCIN HCL [Concomitant]
     Dosage: UNK

REACTIONS (6)
  - SEROTONIN SYNDROME [None]
  - RENAL FAILURE ACUTE [None]
  - HYPERTHERMIA [None]
  - TACHYCARDIA [None]
  - DRUG INTERACTION [None]
  - HYPERTENSION [None]
